FAERS Safety Report 8177285-1 (Version None)
Quarter: 2012Q1

REPORT INFORMATION
  Report Type: 
  Country: None (occurrence: None)
  Receive Date: 20120301
  Receipt Date: 20120229
  Transmission Date: 20120608
  Serious: Yes (Other)
  Sender: FDA-Public Use
  Company Number: CN-ROCHE-1041419

PATIENT
  Sex: Female

DRUGS (1)
  1. XELODA [Suspect]
     Indication: GASTROINTESTINAL CARCINOMA
     Route: 048

REACTIONS (1)
  - CREATININE RENAL CLEARANCE DECREASED [None]
